FAERS Safety Report 21508751 (Version 5)
Quarter: 2022Q4

REPORT INFORMATION
  Report Type: Other
  Country: MX (occurrence: None)
  Receive Date: 20221026
  Receipt Date: 20221108
  Transmission Date: 20230113
  Serious: Yes (Hospitalization, Disabling, Other)
  Sender: FDA-Public Use
  Company Number: MX-ROCHE-3205396

PATIENT
  Age: 57 Year
  Sex: Female
  Weight: 47 kg

DRUGS (7)
  1. PERTUZUMAB [Suspect]
     Active Substance: PERTUZUMAB
     Indication: Breast cancer metastatic
     Route: 042
     Dates: start: 20200117, end: 20200420
  2. PERTUZUMAB [Suspect]
     Active Substance: PERTUZUMAB
     Route: 042
     Dates: start: 20200117, end: 20200420
  3. TRASTUZUMAB [Suspect]
     Active Substance: TRASTUZUMAB
     Indication: Breast cancer metastatic
     Route: 042
     Dates: start: 20200117, end: 20200420
  4. CAPECITABINE [Suspect]
     Active Substance: CAPECITABINE
     Indication: Breast cancer metastatic
     Dosage: DOSE AND FREQUENCY WERE NOT REPORTED
     Route: 048
     Dates: start: 202111, end: 20211109
  5. KADCYLA [Suspect]
     Active Substance: ADO-TRASTUZUMAB EMTANSINE
     Indication: Breast cancer metastatic
     Dosage: TRASTUZUMAB EMTANSINA 160 MG
     Route: 042
     Dates: start: 202209
  6. KADCYLA [Suspect]
     Active Substance: ADO-TRASTUZUMAB EMTANSINE
     Dosage: TRASTUZUMAB EMTANSINA 160 MG
     Route: 042
     Dates: start: 20200120
  7. ONDANSETRON [Concomitant]
     Active Substance: ONDANSETRON
     Dosage: FOR 3 DAYS
     Route: 048

REACTIONS (37)
  - Aphonia [Not Recovered/Not Resolved]
  - Suffocation feeling [Not Recovered/Not Resolved]
  - Metastases to lung [Not Recovered/Not Resolved]
  - Metastases to liver [Not Recovered/Not Resolved]
  - Pericardial excision [Not Recovered/Not Resolved]
  - Biliary dilatation [Not Recovered/Not Resolved]
  - Pericardial effusion [Not Recovered/Not Resolved]
  - Pericardial drainage [Not Recovered/Not Resolved]
  - Neutropenia [Not Recovered/Not Resolved]
  - Thrombocytopenia [Not Recovered/Not Resolved]
  - Metastases to liver [Not Recovered/Not Resolved]
  - Liver injury [Not Recovered/Not Resolved]
  - Liver injury [Not Recovered/Not Resolved]
  - Diarrhoea [Not Recovered/Not Resolved]
  - Vomiting [Not Recovered/Not Resolved]
  - Dysphonia [Not Recovered/Not Resolved]
  - Ill-defined disorder [Not Recovered/Not Resolved]
  - Atelectasis [Not Recovered/Not Resolved]
  - Atelectasis [Not Recovered/Not Resolved]
  - Nodule [Not Recovered/Not Resolved]
  - Toxicity to various agents [Not Recovered/Not Resolved]
  - Ejection fraction decreased [Not Recovered/Not Resolved]
  - Rhinorrhoea [Not Recovered/Not Resolved]
  - Blast injury [Not Recovered/Not Resolved]
  - Product counterfeit [Unknown]
  - Blister [Recovered/Resolved]
  - Dry skin [Recovered/Resolved]
  - Skin disorder [Recovered/Resolved]
  - Dermatitis acneiform [Recovered/Resolved]
  - Pain [Recovered/Resolved]
  - Pyrexia [Recovered/Resolved]
  - Bone pain [Recovered/Resolved]
  - Visual impairment [Not Recovered/Not Resolved]
  - Cough [Recovered/Resolved]
  - Asphyxia [Not Recovered/Not Resolved]
  - Off label use [Unknown]
  - Suspected counterfeit product [Unknown]

NARRATIVE: CASE EVENT DATE: 20200117
